FAERS Safety Report 11792708 (Version 1)
Quarter: 2015Q4

REPORT INFORMATION
  Report Type: Spontaneous
  Country: US (occurrence: None)
  Receive Date: 20151130
  Receipt Date: 20151130
  Transmission Date: 20160305
  Serious: Yes (Death, Hospitalization)
  Sender: FDA-Public Use
  Company Number: 2015US-104202

PATIENT
  Age: 61 Year
  Sex: Male

DRUGS (4)
  1. CLOZAPINE (CLOZAPINE) UNKNOWN [Suspect]
     Active Substance: CLOZAPINE
     Indication: SCHIZOPHRENIA
  2. CLOZAPINE (CLOZAPINE) UNKNOWN [Suspect]
     Active Substance: CLOZAPINE
     Indication: SCHIZOPHRENIA
     Dosage: 150 MG IN THE MORNING, UNKNOWN
  3. CLOZAPINE (CLOZAPINE) UNKNOWN [Suspect]
     Active Substance: CLOZAPINE
     Indication: SCHIZOPHRENIA
  4. CLOZAPINE (CLOZAPINE) UNKNOWN [Suspect]
     Active Substance: CLOZAPINE
     Indication: SCHIZOPHRENIA

REACTIONS (7)
  - Constipation [None]
  - Cardiac arrest [None]
  - Abdominal sepsis [None]
  - Faecaloma [None]
  - Septic shock [None]
  - Multi-organ failure [None]
  - Escherichia infection [None]
